FAERS Safety Report 5613047-4 (Version None)
Quarter: 2008Q1

REPORT INFORMATION
  Report Type: 
  Country: None (occurrence: None)
  Receive Date: 20080129
  Receipt Date: 20080114
  Transmission Date: 20080703
  Serious: Yes (Death)
  Sender: FDA-Public Use
  Company Number: 2008S1000035

PATIENT
  Age: 32 Year
  Sex: Female

DRUGS (11)
  1. ROXANOL [Suspect]
     Dosage: PO
     Route: 048
     Dates: end: 20060101
  2. ROXICODONE [Suspect]
     Dosage: PO
     Route: 048
     Dates: end: 20060101
  3. UNKNOWN DRUG [Suspect]
     Dosage: PO
     Route: 048
     Dates: end: 20060101
  4. ACETAMINOPHEN [Suspect]
     Dosage: PO
     Route: 048
     Dates: end: 20060101
  5. DIPHENHYDRAMINE HCL [Suspect]
     Dosage: PO
     Route: 048
     Dates: end: 20060101
  6. VERAPAMIL [Suspect]
     Dosage: PO
     Route: 048
  7. PROMETHAZINE [Suspect]
     Dosage: PO
     Route: 048
     Dates: end: 20060101
  8. CYCLOBENZAPRINE HCL [Suspect]
     Dosage: PO
     Route: 048
     Dates: end: 20060101
  9. TEMAZEPAM [Suspect]
     Dosage: PO
     Route: 048
     Dates: end: 20060101
  10. ZOLPIDEM [Suspect]
     Dosage: PO
     Route: 048
     Dates: end: 20060101
  11. CARISOPRODOL [Suspect]
     Dosage: PO
     Route: 048
     Dates: end: 20060101

REACTIONS (2)
  - CARDIAC ARREST [None]
  - RESPIRATORY ARREST [None]
